FAERS Safety Report 10205233 (Version 1)
Quarter: 2014Q2

REPORT INFORMATION
  Report Type: Spontaneous
  Country: AU (occurrence: AU)
  Receive Date: 20140529
  Receipt Date: 20140529
  Transmission Date: 20141212
  Serious: Yes (Other)
  Sender: FDA-Public Use
  Company Number: AU-MYLANLABS-2014S1011451

PATIENT
  Age: 23 Year
  Sex: Male

DRUGS (1)
  1. ENLAFAX-XR [Suspect]
     Indication: DEPRESSION
     Dates: start: 20140514, end: 20140516

REACTIONS (4)
  - Drug withdrawal syndrome [Recovered/Resolved]
  - Feeling abnormal [Recovered/Resolved]
  - Agitation [Recovered/Resolved]
  - Product substitution issue [Recovered/Resolved]
